FAERS Safety Report 12644269 (Version 1)
Quarter: 2016Q3

REPORT INFORMATION
  Report Type: Report from Study
  Country: KR (occurrence: KR)
  Receive Date: 20160811
  Receipt Date: 20160811
  Transmission Date: 20161109
  Serious: Yes (Hospitalization, Other)
  Sender: FDA-Public Use
  Company Number: KR-CELLTRION HEALTHCARE HUNGARY KFT-2015KR001076

PATIENT

DRUGS (16)
  1. REMSIMA [Suspect]
     Active Substance: INFLIXIMAB
     Dosage: 300 (UNKNOWN UNITS), SINGLE
     Route: 042
     Dates: start: 20150409, end: 20150409
  2. STABLON [Concomitant]
     Active Substance: TIANEPTINE
     Indication: DEPRESSION
     Dosage: 12.5 MG, UNK
     Dates: start: 20150115, end: 20150130
  3. SALON H9C [Concomitant]
     Indication: ELECTROLYTE IMBALANCE
     Dosage: 40 UNK, UNK
     Route: 042
     Dates: start: 20150126, end: 20150205
  4. SUSPEN                             /00001802/ [Concomitant]
     Indication: CROHN^S DISEASE
     Dosage: 650 UNK, UNK
     Route: 048
     Dates: start: 20150115, end: 20150130
  5. REMSIMA [Suspect]
     Active Substance: INFLIXIMAB
     Dosage: 300 (UNKNOWN UNITS), SINGLE
     Route: 042
     Dates: start: 20141231, end: 20141231
  6. CORTISOLU [Concomitant]
     Active Substance: HYDROCORTISONE SODIUM SUCCINATE
     Indication: PROPHYLAXIS
     Dosage: 100 (UNKNOWN UNITS), SINGLE
     Route: 042
     Dates: start: 20141231, end: 20150910
  7. REMSIMA [Suspect]
     Active Substance: INFLIXIMAB
     Indication: CROHN^S DISEASE
     Dosage: 300 (UNKNOWN UNITS), SINGLE
     Route: 042
     Dates: start: 20141218, end: 20141218
  8. CURAN [Concomitant]
     Active Substance: RANITIDINE HYDROCHLORIDE
     Indication: GASTRITIS
     Dosage: UNK
     Route: 042
     Dates: start: 20150126, end: 20150129
  9. REMSIMA [Suspect]
     Active Substance: INFLIXIMAB
     Dosage: 300 (UNKNOWN UNITS), SINGLE
     Route: 042
     Dates: start: 20150910, end: 20150910
  10. CURAN [Concomitant]
     Active Substance: RANITIDINE HYDROCHLORIDE
     Indication: GASTRITIS
     Dosage: 150 MG, UNK
     Dates: start: 20150129, end: 20150409
  11. PENIRAMIN [Concomitant]
     Indication: PROPHYLAXIS
     Dosage: 2 (UNKNOWN UNITS), SINGLE
     Route: 042
     Dates: start: 20141218, end: 20141218
  12. TUBERKULIN PPD RT23 SSI [Concomitant]
     Indication: TUBERCULIN TEST
     Dosage: 0.4 (UNKNOWN UNITS), SINGLE
     Route: 058
     Dates: start: 20141218, end: 20141218
  13. PHOSTEN [Concomitant]
     Indication: PROPHYLAXIS
     Dosage: 20 ML, SINGLE
     Route: 042
     Dates: start: 20150126, end: 20150126
  14. TORANZIN [Concomitant]
     Indication: PROPHYLAXIS
     Dosage: UNK
     Route: 042
     Dates: start: 20150126, end: 20150126
  15. AZATHIOPRINE. [Concomitant]
     Active Substance: AZATHIOPRINE
     Indication: CROHN^S DISEASE
     Dosage: 50 MG
     Route: 065
     Dates: start: 20141231, end: 20150128
  16. TRESTAN                            /00056201/ [Concomitant]
     Indication: APPETITE DISORDER
     Dosage: UNK
     Route: 048
     Dates: start: 20150305, end: 20151014

REACTIONS (2)
  - Disseminated tuberculosis [Recovered/Resolved]
  - Lymphadenitis [Recovered/Resolved]

NARRATIVE: CASE EVENT DATE: 20150126
